FAERS Safety Report 15295684 (Version 2)
Quarter: 2018Q3

REPORT INFORMATION
  Report Type: Spontaneous
  Country: US (occurrence: US)
  Receive Date: 20180820
  Receipt Date: 20180824
  Transmission Date: 20181010
  Serious: Yes (Hospitalization, Congenital Anomaly, Other)
  Sender: FDA-Public Use
  Company Number: US-GLAXOSMITHKLINE-US2018GSK149503

PATIENT
  Sex: Male

DRUGS (8)
  1. PREVACID [Suspect]
     Active Substance: LANSOPRAZOLE
     Indication: COLITIS ULCERATIVE
     Dosage: 30 MG, UNK
     Route: 065
  2. PREVACID [Suspect]
     Active Substance: LANSOPRAZOLE
     Indication: DIVERTICULITIS
  3. ZANTAC [Suspect]
     Active Substance: RANITIDINE HYDROCHLORIDE
     Indication: DIVERTICULITIS
  4. TAGAMET [Suspect]
     Active Substance: CIMETIDINE
     Indication: COLITIS ULCERATIVE
     Dosage: UNK
     Route: 065
  5. TAGAMET [Suspect]
     Active Substance: CIMETIDINE
     Indication: DIVERTICULITIS
  6. TAGAMET [Suspect]
     Active Substance: CIMETIDINE
     Indication: COLITIS ULCERATIVE
     Dosage: 30 MG, UNK
     Route: 065
  7. ZANTAC [Suspect]
     Active Substance: RANITIDINE HYDROCHLORIDE
     Indication: COLITIS ULCERATIVE
     Dosage: UNK
     Route: 065
  8. TAGAMET [Suspect]
     Active Substance: CIMETIDINE
     Indication: DIVERTICULITIS

REACTIONS (9)
  - Acute kidney injury [Unknown]
  - Renal disorder [Unknown]
  - Chronic kidney disease [Unknown]
  - Nephrolithiasis [Unknown]
  - Renal failure [Unknown]
  - Nephropathy [Unknown]
  - Urethral stenosis [Unknown]
  - Renal impairment [Unknown]
  - Diabetic nephropathy [Unknown]
